FAERS Safety Report 7827369-X (Version None)
Quarter: 2011Q4

REPORT INFORMATION
  Report Type: 
  Country: None (occurrence: None)
  Receive Date: 20111020
  Receipt Date: 20111013
  Transmission Date: 20120403
  Serious: Yes (Other)
  Sender: FDA-Public Use
  Company Number: US-BRISTOL-MYERS SQUIBB COMPANY-16159519

PATIENT
  Age: 61 Year
  Sex: Male
  Weight: 75 kg

DRUGS (1)
  1. YERVOY [Suspect]
     Dosage: 3MG/KG 2ND DOSE:03AUG11, 3RD 31AUG11,4TH DOSE ON 21SEP11
     Route: 042
     Dates: start: 20110629

REACTIONS (6)
  - NAUSEA [None]
  - PRURITUS [None]
  - RETCHING [None]
  - RASH GENERALISED [None]
  - DECREASED APPETITE [None]
  - WEIGHT DECREASED [None]
